FAERS Safety Report 8136807-7 (Version None)
Quarter: 2012Q1

REPORT INFORMATION
  Report Type: 
  Country: None (occurrence: None)
  Receive Date: 20120214
  Receipt Date: 20120208
  Transmission Date: 20120608
  Serious: Yes (Other)
  Sender: FDA-Public Use
  Company Number: US-ABBOTT-10P-163-0683282-00

PATIENT
  Sex: Female
  Weight: 54.026 kg

DRUGS (14)
  1. MOBIC [Concomitant]
     Indication: OSTEOARTHRITIS
     Dates: end: 20100401
  2. SINGULAIR [Concomitant]
     Indication: ASTHMA
     Dates: end: 20100401
  3. PILOCARPINE [Concomitant]
     Indication: PRODUCT USED FOR UNKNOWN INDICATION
     Route: 048
  4. PREDNISONE TAB [Concomitant]
     Indication: PRODUCT USED FOR UNKNOWN INDICATION
     Dates: start: 20100201, end: 20100401
  5. MOBIC [Concomitant]
     Indication: RHEUMATOID ARTHRITIS
  6. LISINOPRIL [Concomitant]
     Indication: BLOOD PRESSURE
     Dates: end: 20100401
  7. LORATADINE [Concomitant]
     Indication: PRODUCT USED FOR UNKNOWN INDICATION
  8. UNKNOWN MEDICATIONS [Concomitant]
     Indication: ASTHMA
     Dates: start: 20100401
  9. HUMIRA [Suspect]
     Indication: RHEUMATOID ARTHRITIS
     Route: 058
     Dates: start: 20040401, end: 20100401
  10. ACTONEL [Concomitant]
     Indication: OSTEOPOROSIS
     Dates: end: 20100401
  11. UNKNOWN MEDICATIONS [Concomitant]
     Indication: OSTEOARTHRITIS
     Dates: end: 20100401
  12. ACETAMINOPHEN [Concomitant]
     Indication: PRODUCT USED FOR UNKNOWN INDICATION
  13. OMEPRAZOLE [Concomitant]
     Indication: GASTROOESOPHAGEAL REFLUX DISEASE
     Dates: end: 20100401
  14. MELOXICAM [Concomitant]
     Indication: PRODUCT USED FOR UNKNOWN INDICATION
     Route: 048
     Dates: start: 20040401

REACTIONS (12)
  - RHEUMATOID ARTHRITIS [None]
  - SJOGREN'S SYNDROME [None]
  - CHROMATURIA [None]
  - ARTHRALGIA [None]
  - MALAISE [None]
  - FATIGUE [None]
  - HIATUS HERNIA [None]
  - HEPATITIS TOXIC [None]
  - DYSGEUSIA [None]
  - HEPATIC NECROSIS [None]
  - WEIGHT DECREASED [None]
  - BRONCHITIS [None]
